FAERS Safety Report 6743600 (Version 3)
Quarter: 2012Q4

REPORT INFORMATION
  Report Type: 
  Country: CA (occurrence: CA)
  Receive Date: 20080829
  Receipt Date: 20121107
  Transmission Date: 20130627
  Serious: Yes (Death, Hospitalization, Other)
  Sender: FDA-Public Use
  Company Number: PHHY2008CA18988

PATIENT
  Sex: Male

DRUGS (2)
  1. SANDOSTATIN LAR [Suspect]
     Indication: CARCINOID SYNDROME
     Dosage: 60 mg every 2 weeks
     Route: 030
     Dates: start: 20050422, end: 20080821
  2. SANDOSTATIN LAR [Suspect]
     Dosage: 60 mg, QW2
     Route: 030

REACTIONS (9)
  - Cerebrovascular accident [Fatal]
  - Loss of consciousness [Unknown]
  - Thrombosis [Unknown]
  - Cyanosis [Unknown]
  - Painful defaecation [Unknown]
  - Blood pressure decreased [Unknown]
  - Diarrhoea [Unknown]
  - Asthenia [Unknown]
  - Weight decreased [Unknown]
